FAERS Safety Report 21576734 (Version 1)
Quarter: 2022Q4

REPORT INFORMATION
  Report Type: Spontaneous
  Country: CA (occurrence: CA)
  Receive Date: 20221110
  Receipt Date: 20221110
  Transmission Date: 20230112
  Serious: Yes (Other)
  Sender: FDA-Public Use
  Company Number: None

PATIENT
  Age: 5 Decade
  Sex: Male

DRUGS (1)
  1. METHOTREXATE [Suspect]
     Active Substance: METHOTREXATE
     Indication: Corneal epithelial downgrowth
     Dosage: 2 EVERY 1 WEEKS
     Route: 031

REACTIONS (3)
  - Limbal stem cell deficiency [Unknown]
  - Retinal artery occlusion [Unknown]
  - Retinal pigment epitheliopathy [Unknown]
